FAERS Safety Report 22310160 (Version 1)
Quarter: 2023Q2

REPORT INFORMATION
  Report Type: Spontaneous
  Country: GB (occurrence: GB)
  Receive Date: 20230511
  Receipt Date: 20230511
  Transmission Date: 20230722
  Serious: Yes (Other)
  Sender: FDA-Public Use
  Company Number: GB-MHRA-MED-202305020720078690-BNHZJ

PATIENT
  Age: 67 Year
  Sex: Male
  Weight: 73 kg

DRUGS (2)
  1. LOPERAMIDE [Suspect]
     Active Substance: LOPERAMIDE
     Indication: Diarrhoea
     Dosage: 2MG AS NEEDED PER INSTRUCTIONS; THERAPY START DATE: NASK
     Route: 065
     Dates: end: 20230502
  2. IBUPROFEN [Concomitant]
     Active Substance: IBUPROFEN
     Indication: Pyrexia

REACTIONS (3)
  - Rash papular [Not Recovered/Not Resolved]
  - Rash pruritic [Not Recovered/Not Resolved]
  - Rash [Not Recovered/Not Resolved]

NARRATIVE: CASE EVENT DATE: 20230101
